FAERS Safety Report 16988603 (Version 1)
Quarter: 2019Q4

REPORT INFORMATION
  Report Type: Spontaneous
  Country: US (occurrence: US)
  Receive Date: 20190919
  Receipt Date: 20190919
  Transmission Date: 20200122
  Serious: Yes (Other)
  Sender: FDA-Public Use
  Company Number: None

PATIENT
  Age: 68 Year
  Sex: Male
  Weight: 83.91 kg

DRUGS (14)
  1. BENADRYL [Concomitant]
     Active Substance: DIPHENHYDRAMINE HYDROCHLORIDE
  2. KIRKLAND SIGNATURE ALLER FLO [Concomitant]
     Active Substance: FLUTICASONE PROPIONATE
  3. BENZONATATE. [Concomitant]
     Active Substance: BENZONATATE
  4. METHOCARBAMOL. [Concomitant]
     Active Substance: METHOCARBAMOL
  5. SIMVASTATIN. [Concomitant]
     Active Substance: SIMVASTATIN
  6. SUDAFED [Concomitant]
     Active Substance: PSEUDOEPHEDRINE HYDROCHLORIDE
  7. ADVIL [Concomitant]
     Active Substance: IBUPROFEN
  8. SMZ/TMP DS [Suspect]
     Active Substance: SULFAMETHOXAZOLE\TRIMETHOPRIM
     Indication: SINUSITIS
     Dosage: ?          QUANTITY:1 DF DOSAGE FORM;?
     Route: 048
     Dates: start: 20190812, end: 20190812
  9. ROBITUSSIN AC [Concomitant]
  10. TYLENOL [Concomitant]
     Active Substance: ACETAMINOPHEN
  11. VITAMIN C [Concomitant]
     Active Substance: ASCORBIC ACID
  12. METOPROLOL. [Concomitant]
     Active Substance: METOPROLOL
  13. BUSPAR [Concomitant]
     Active Substance: BUSPIRONE HYDROCHLORIDE
  14. VITAMIN D3 [Concomitant]
     Active Substance: CHOLECALCIFEROL

REACTIONS (5)
  - Dizziness [None]
  - Balance disorder [None]
  - Asthenia [None]
  - Heart rate increased [None]
  - Insomnia [None]

NARRATIVE: CASE EVENT DATE: 20190812
